FAERS Safety Report 17029338 (Version 4)
Quarter: 2020Q1

REPORT INFORMATION
  Report Type: Spontaneous
  Country: AU (occurrence: AU)
  Receive Date: 20191114
  Receipt Date: 20200225
  Transmission Date: 20200409
  Serious: Yes (Other)
  Sender: FDA-Public Use
  Company Number: AU-ORION CORPORATION ORION PHARMA-TREX2019-3221

PATIENT
  Age: 49 Year
  Sex: Male
  Weight: 103 kg

DRUGS (2)
  1. PREDNISOLONE. [Suspect]
     Active Substance: PREDNISOLONE
     Indication: CARDIAC SARCOIDOSIS
     Route: 048
     Dates: start: 2016
  2. METHOTREXATE (TRADE NAME UNKNOWN) [Suspect]
     Active Substance: METHOTREXATE
     Indication: CARDIAC SARCOIDOSIS
     Route: 048
     Dates: start: 20160301

REACTIONS (3)
  - Cardiac sarcoidosis [Not Recovered/Not Resolved]
  - Drug ineffective for unapproved indication [Not Recovered/Not Resolved]
  - Product use in unapproved indication [Unknown]

NARRATIVE: CASE EVENT DATE: 20160301
